FAERS Safety Report 9596652 (Version 1)
Quarter: 2013Q4

REPORT INFORMATION
  Report Type: Spontaneous
  Country: CH (occurrence: CH)
  Receive Date: 20131004
  Receipt Date: 20131004
  Transmission Date: 20140711
  Serious: Yes (Hospitalization, Other)
  Sender: FDA-Public Use
  Company Number: CH-ABBVIE-13P-151-1153279-00

PATIENT
  Sex: Male

DRUGS (4)
  1. HUMIRA [Suspect]
     Indication: PSORIATIC ARTHROPATHY
     Dates: end: 2012
  2. HUMIRA [Suspect]
     Dates: start: 2012, end: 20130806
  3. DIAMICRON [Concomitant]
     Indication: DIABETES MELLITUS
  4. ANTI-HYPERTENSIVE DRUGS [Concomitant]
     Indication: HYPERTENSION

REACTIONS (4)
  - Prostatic disorder [Not Recovered/Not Resolved]
  - Appendicitis [Recovering/Resolving]
  - Cystitis [Recovering/Resolving]
  - Pain in extremity [Unknown]
